FAERS Safety Report 4848732-5 (Version None)
Quarter: 2005Q4

REPORT INFORMATION
  Report Type: 
  Country: None (occurrence: None)
  Receive Date: 20051206
  Receipt Date: 20051123
  Transmission Date: 20060501
  Serious: Yes (Hospitalization)
  Sender: FDA-Public Use
  Company Number: FR200511002608

PATIENT
  Age: 3 Day

DRUGS (3)
  1. PROZAC [Suspect]
     Dosage: TRANSPLACENTAL
     Route: 064
     Dates: end: 20050822
  2. ATARAX [Concomitant]
  3. VALIUM [Concomitant]

REACTIONS (4)
  - DRUG EXPOSURE DURING PREGNANCY [None]
  - PREMATURE BABY [None]
  - SOMNOLENCE NEONATAL [None]
  - TREMOR NEONATAL [None]
